FAERS Safety Report 19833067 (Version 5)
Quarter: 2022Q3

REPORT INFORMATION
  Report Type: Report from Study
  Country: US (occurrence: US)
  Receive Date: 20210915
  Receipt Date: 20220825
  Transmission Date: 20221027
  Serious: No
  Sender: FDA-Public Use
  Company Number: NVSC2021US209317

PATIENT
  Sex: Male

DRUGS (2)
  1. ENTRESTO [Suspect]
     Active Substance: SACUBITRIL\VALSARTAN
     Indication: Product used for unknown indication
     Dosage: UNK UNK, BID
     Route: 048
     Dates: start: 20210901
  2. ENTRESTO [Suspect]
     Active Substance: SACUBITRIL\VALSARTAN
     Dosage: UNK
     Route: 065

REACTIONS (5)
  - Weight decreased [Unknown]
  - Feeling abnormal [Unknown]
  - Fatigue [Unknown]
  - Weight increased [Unknown]
  - Decreased activity [Unknown]
